FAERS Safety Report 6446929-4 (Version None)
Quarter: 2009Q4

REPORT INFORMATION
  Report Type: 
  Country: None (occurrence: None)
  Receive Date: 20091119
  Receipt Date: 20091113
  Transmission Date: 20100525
  Serious: Yes (Other)
  Sender: FDA-Public Use
  Company Number: US-MERCK-0803USA01789

PATIENT
  Age: 78 Year
  Sex: Male
  Weight: 66 kg

DRUGS (4)
  1. FOSAMAX [Suspect]
     Indication: OSTEOPOROSIS
     Route: 048
     Dates: start: 20050101, end: 20080101
  2. CORTICOSTEROIDS (UNSPECIFIED) [Concomitant]
  3. CIPRO [Concomitant]
     Route: 065
  4. FOSAMAX PLUS D [Suspect]
     Indication: OSTEOPOROSIS
     Route: 048
     Dates: start: 20050823, end: 20071203

REACTIONS (9)
  - EXCESSIVE GRANULATION TISSUE [None]
  - IMPAIRED HEALING [None]
  - INFECTION [None]
  - JAW DISORDER [None]
  - ORAL PAIN [None]
  - OSTEONECROSIS [None]
  - PYOGENIC GRANULOMA [None]
  - TOOTH DISORDER [None]
  - TOOTHACHE [None]
